FAERS Safety Report 11169320 (Version 1)
Quarter: 2015Q2

REPORT INFORMATION
  Report Type: Spontaneous
  Country: CO (occurrence: CO)
  Receive Date: 20150605
  Receipt Date: 20150605
  Transmission Date: 20150821
  Serious: Yes (Hospitalization)
  Sender: FDA-Public Use
  Company Number: CO-BIOMARINAP-CO-2015-106499

PATIENT
  Sex: Female
  Weight: 15 kg

DRUGS (1)
  1. VIMIZIM [Suspect]
     Active Substance: ELOSULFASE ALFA
     Indication: MUCOPOLYSACCHARIDOSIS IV
     Dosage: 20 MG, QW
     Route: 042
     Dates: start: 20140722

REACTIONS (2)
  - Cyanosis [Unknown]
  - Bronchopneumonia [Unknown]
